FAERS Safety Report 10021850 (Version 1)
Quarter: 2014Q1

REPORT INFORMATION
  Report Type: Spontaneous
  Country: US (occurrence: None)
  Receive Date: 20140313
  Receipt Date: 20140313
  Transmission Date: 20141002
  Serious: Yes (Other)
  Sender: FDA-Public Use
  Company Number: 2014SGN00173

PATIENT
  Age: 50 Year
  Sex: Female

DRUGS (2)
  1. ADCETRIS [Suspect]
     Indication: HODGKIN^S DISEASE RECURRENT
     Dates: start: 201202, end: 201302
  2. ADCETRIS [Suspect]
     Indication: HODGKIN^S DISEASE REFRACTORY
     Dates: start: 201202, end: 201302

REACTIONS (2)
  - Neoplasm [None]
  - Disease progression [None]
